FAERS Safety Report 8423980-6 (Version None)
Quarter: 2012Q2

REPORT INFORMATION
  Report Type: 
  Country: None (occurrence: None)
  Receive Date: 20120608
  Receipt Date: 20120601
  Transmission Date: 20120825
  Serious: Yes (Other)
  Sender: FDA-Public Use
  Company Number: GB-B.I. PHARMACEUTICALS,INC./RIDGEFIELD-2012-UK-00740UK

PATIENT
  Age: 68 Year
  Sex: Female

DRUGS (10)
  1. DOXAZOSIN MESYLATE [Concomitant]
     Dosage: 8 MG
  2. GLICLAZIDE [Concomitant]
     Dosage: 80 MG
  3. TRAJENTA [Suspect]
     Dosage: 5 MG
     Route: 048
     Dates: start: 20120418
  4. CANDESARTAN CILEXETIL [Concomitant]
     Dosage: 16 MG
  5. FUROSEMIDE [Concomitant]
     Dosage: 20 MG
  6. ASPIRIN [Concomitant]
  7. ANGEZE/MONOMAX SR [Concomitant]
  8. ATENOLOL [Concomitant]
     Dosage: 50 MG
  9. EZETIMIBE [Concomitant]
     Dosage: 10 MG
  10. ACETAMINOPHEN [Concomitant]

REACTIONS (1)
  - DYSGEUSIA [None]
